FAERS Safety Report 8891353 (Version 1)
Quarter: 2012Q4

REPORT INFORMATION
  Report Type: Spontaneous
  Country: US (occurrence: None)
  Receive Date: 20121102
  Receipt Date: 20121102
  Transmission Date: 20130627
  Serious: No
  Sender: FDA-Public Use
  Company Number: None

PATIENT
  Sex: Female
  Weight: 95.26 kg

DRUGS (2)
  1. BUPROPION [Suspect]
     Dosage: 300mg / 150mg daily PO
     Route: 048
     Dates: start: 201209
  2. BUPROPION 300MG + 150MG ANCHEN [Suspect]
     Dates: start: 201110, end: 201208

REACTIONS (3)
  - General physical health deterioration [None]
  - Depression [None]
  - Drug ineffective [None]
